FAERS Safety Report 7346730-3 (Version None)
Quarter: 2011Q1

REPORT INFORMATION
  Report Type: 
  Country: None (occurrence: None)
  Receive Date: 20110311
  Receipt Date: 20110308
  Transmission Date: 20110831
  Serious: Yes (Death, Hospitalization, Other)
  Sender: FDA-Public Use
  Company Number: US-BRISTOL-MYERS SQUIBB COMPANY-15555113

PATIENT
  Age: 76 Year
  Sex: Female
  Weight: 54 kg

DRUGS (22)
  1. BENADRYL [Concomitant]
     Dates: start: 20100628
  2. CARBOPLATIN [Suspect]
     Indication: NON-SMALL CELL LUNG CANCER
     Dosage: 6DF:6AUC
     Route: 042
     Dates: start: 20100628, end: 20100628
  3. ZANTAC [Concomitant]
     Indication: GASTROOESOPHAGEAL REFLUX DISEASE
     Dates: start: 20100628
  4. AMLODIPINE BESYLATE [Concomitant]
  5. BEVACIZUMAB [Suspect]
     Indication: NON-SMALL CELL LUNG CANCER
     Route: 042
     Dates: start: 20100628, end: 20100628
  6. HYDROCHLOROTHIAZIDE [Concomitant]
     Dates: start: 20100608
  7. ALBUTEROL [Concomitant]
     Dates: start: 20100408
  8. ZOFRAN [Concomitant]
     Dates: start: 20100628
  9. RESTORIL [Concomitant]
     Dates: start: 20100608
  10. DECADRON [Concomitant]
     Indication: VOMITING
     Dates: start: 20100628
  11. ZOMETA [Concomitant]
     Indication: BONE PAIN
     Dates: start: 20100628
  12. ZOMETA [Concomitant]
     Indication: METASTASIS
     Dates: start: 20100628
  13. LISINOPRIL [Concomitant]
  14. MEGACE [Concomitant]
     Dates: start: 20100608
  15. PACLITAXEL [Suspect]
     Indication: NON-SMALL CELL LUNG CANCER
     Route: 042
     Dates: start: 20100628, end: 20100628
  16. POTASSIUM [Concomitant]
  17. TEMAZEPAM [Concomitant]
  18. VISTARIL [Concomitant]
     Dates: start: 20100412
  19. ADVAIR DISKUS 100/50 [Concomitant]
  20. ASPIRIN [Concomitant]
     Dates: start: 20100408
  21. HYDROXYZINE [Concomitant]
  22. NUCYNTA [Concomitant]

REACTIONS (12)
  - NAUSEA [None]
  - VOMITING [None]
  - DEHYDRATION [None]
  - ASTHENIA [None]
  - NEUTROPENIA [None]
  - DEATH [None]
  - TACHYCARDIA [None]
  - FEELING COLD [None]
  - RESPIRATORY DISTRESS [None]
  - DIARRHOEA [None]
  - CARDIO-RESPIRATORY ARREST [None]
  - HYPOTENSION [None]
